FAERS Safety Report 5060685-6 (Version None)
Quarter: 2006Q3

REPORT INFORMATION
  Report Type: 
  Country: None (occurrence: None)
  Receive Date: 20060720
  Receipt Date: 20060720
  Transmission Date: 20061208
  Serious: Yes (Hospitalization)
  Sender: FDA-Public Use
  Company Number: None

PATIENT
  Age: 54 Year
  Sex: Male
  Weight: 74.9 kg

DRUGS (13)
  1. AZITHROMYCIN [Suspect]
  2. ALBUTEROL 90/IPRATROPIUM [Concomitant]
  3. LORAZEPAM [Concomitant]
  4. FUROSEMIDE [Concomitant]
  5. METHYLPREDNISOLONE [Concomitant]
  6. ASPIRIN [Concomitant]
  7. NITROGLYCERIN [Concomitant]
  8. SIMVASTATIN [Concomitant]
  9. ALLOPURINOL [Concomitant]
  10. LEVALBUTEROL HCL [Concomitant]
  11. IPRATROPIUM BROMIDE [Concomitant]
  12. METOPROLOL TARTRATE [Concomitant]
  13. CEFTRIAXONE [Concomitant]

REACTIONS (2)
  - DIZZINESS [None]
  - HYPERHIDROSIS [None]
